FAERS Safety Report 25520485 (Version 1)
Quarter: 2025Q3

REPORT INFORMATION
  Report Type: Spontaneous
  Country: US (occurrence: US)
  Receive Date: 20250704
  Receipt Date: 20250704
  Transmission Date: 20251020
  Serious: Yes (Other)
  Sender: JAZZ
  Company Number: US-JAZZ PHARMACEUTICALS-2025-US-016042

PATIENT
  Sex: Female

DRUGS (1)
  1. ZIIHERA [Suspect]
     Active Substance: ZANIDATAMAB-HRII
     Indication: HER2 positive biliary tract cancer
     Route: 042

REACTIONS (2)
  - Metastases to central nervous system [Unknown]
  - Fall [Unknown]

NARRATIVE: CASE EVENT DATE: 20250620
